FAERS Safety Report 6132477-8 (Version None)
Quarter: 2009Q1

REPORT INFORMATION
  Report Type: 
  Country: None (occurrence: None)
  Receive Date: 20090325
  Receipt Date: 20090320
  Transmission Date: 20090719
  Serious: No
  Sender: FDA-Public Use
  Company Number: US-B.I. PHARMACEUTICALS,INC./RIDGEFIELD-2009-BP-02140BP

PATIENT
  Age: 43 Year
  Sex: Female
  Weight: 105 kg

DRUGS (3)
  1. MIRAPEX [Suspect]
     Indication: RESTLESS LEGS SYNDROME
     Dosage: .25MG
     Route: 048
     Dates: start: 20081001, end: 20081204
  2. SYNTHROID [Concomitant]
     Dosage: 175MCG
  3. LEXAPRO [Concomitant]
     Dosage: 20MG

REACTIONS (1)
  - PATHOLOGICAL GAMBLING [None]
